FAERS Safety Report 11696879 (Version 1)
Quarter: 2015Q4

REPORT INFORMATION
  Report Type: Spontaneous
  Country: GB (occurrence: GB)
  Receive Date: 20151104
  Receipt Date: 20151104
  Transmission Date: 20160304
  Serious: Yes (Other)
  Sender: FDA-Public Use
  Company Number: GB-PFIZER INC-2015369516

PATIENT
  Age: 68 Year
  Sex: Female
  Weight: 61.7 kg

DRUGS (2)
  1. DALTEPARIN SODIUM [Suspect]
     Active Substance: DALTEPARIN SODIUM
     Dosage: 5000 IU DOSE
     Route: 051
     Dates: start: 20150914, end: 20151012
  2. THYROXINE [Concomitant]
     Active Substance: LEVOTHYROXINE
     Dosage: TAKEN FOR OVER 10 YEARS

REACTIONS (4)
  - Heart rate increased [Recovered/Resolved]
  - Palpitations [Recovered/Resolved]
  - Heart rate irregular [Recovered/Resolved]
  - Chest discomfort [Recovered/Resolved]

NARRATIVE: CASE EVENT DATE: 20150918
